FAERS Safety Report 5183710-0 (Version None)
Quarter: 2006Q4

REPORT INFORMATION
  Report Type: 
  Country: None (occurrence: None)
  Receive Date: 20061220
  Receipt Date: 20060131
  Transmission Date: 20070319
  Serious: No
  Sender: FDA-Public Use
  Company Number: US-GLAXOSMITHKLINE-A0591668A

PATIENT
  Age: 47 Year

DRUGS (2)
  1. NICODERM CQ [Suspect]
     Dates: start: 20060108
  2. NICODERM CQ [Suspect]
     Dates: start: 20060108

REACTIONS (3)
  - DRY SKIN [None]
  - RASH [None]
  - SKIN CHAPPED [None]
